FAERS Safety Report 10925492 (Version 1)
Quarter: 2015Q1

REPORT INFORMATION
  Report Type: Spontaneous
  Country: PH (occurrence: None)
  Receive Date: 20150202
  Receipt Date: 20150202
  Transmission Date: 20150721
  Serious: Yes (Hospitalization)
  Sender: FDA-Public Use
  Company Number: THQ2013A04547

PATIENT
  Age: 50 Year
  Sex: Male

DRUGS (3)
  1. DEXILANT [Suspect]
     Active Substance: DEXLANSOPRAZOLE
     Indication: EROSIVE OESOPHAGITIS
     Route: 048
     Dates: start: 20130606, end: 20130611
  2. DEXILANT [Suspect]
     Active Substance: DEXLANSOPRAZOLE
     Indication: GASTROOESOPHAGEAL REFLUX DISEASE
     Route: 048
     Dates: start: 20130606, end: 20130611
  3. MUCOSTA (REBAMIPIDE) [Concomitant]

REACTIONS (4)
  - Nausea [None]
  - Diarrhoea [None]
  - Palpitations [None]
  - Vomiting [None]

NARRATIVE: CASE EVENT DATE: 20130611
